FAERS Safety Report 6519892-5 (Version None)
Quarter: 2009Q4

REPORT INFORMATION
  Report Type: 
  Country: None (occurrence: None)
  Receive Date: 20091229
  Receipt Date: 20091216
  Transmission Date: 20100525
  Serious: Yes (Other)
  Sender: FDA-Public Use
  Company Number: US-JNJCH-2009032889

PATIENT
  Age: 20 Year

DRUGS (1)
  1. DEXTROMETHORPHAN [Suspect]
     Indication: DRUG USE FOR UNKNOWN INDICATION
     Dosage: TEXT:1000MG
     Route: 048

REACTIONS (8)
  - AGITATION [None]
  - DEPRESSED LEVEL OF CONSCIOUSNESS [None]
  - HYPERTENSION [None]
  - HYPOTENSION [None]
  - MYDRIASIS [None]
  - RESPIRATION ABNORMAL [None]
  - SKIN DISORDER [None]
  - TREMOR [None]
